FAERS Safety Report 4587306-0 (Version None)
Quarter: 2005Q1

REPORT INFORMATION
  Report Type: 
  Country: None (occurrence: None)
  Receive Date: 20050215
  Receipt Date: 20050201
  Transmission Date: 20050727
  Serious: Yes (Hospitalization)
  Sender: FDA-Public Use
  Company Number: 2005AP00699

PATIENT
  Age: 33 Year
  Sex: Female
  Weight: 60 kg

DRUGS (1)
  1. ZOLADEX [Suspect]
     Indication: ENDOMETRIOSIS
     Dosage: 6 DOSES GIVEN IN TOTAL
     Dates: start: 20030601, end: 20031031

REACTIONS (7)
  - ALCOHOL INTOLERANCE [None]
  - ARTHRALGIA [None]
  - FATIGUE [None]
  - MICTURITION DISORDER [None]
  - PARAESTHESIA [None]
  - VOMITING [None]
  - WEIGHT INCREASED [None]
